FAERS Safety Report 9787610 (Version 1)
Quarter: 2013Q4

REPORT INFORMATION
  Report Type: Spontaneous
  Country: IT (occurrence: IT)
  Receive Date: 20131230
  Receipt Date: 20131230
  Transmission Date: 20140711
  Serious: Yes (Hospitalization)
  Sender: FDA-Public Use
  Company Number: IT-TEVA-452741ISR

PATIENT
  Age: 76 Year
  Sex: Female

DRUGS (7)
  1. LEVOFLOXACIN [Suspect]
     Indication: RESPIRATORY DISORDER
     Dosage: 500 MILLIGRAM DAILY;
     Route: 048
     Dates: start: 20131121, end: 20131124
  2. COUMADIN - 5 MG COMPRESSE [Concomitant]
  3. LANITOP - 0,6% GOCCE ORALI, SOLUZIONE [Concomitant]
  4. LASITONE - 25 MG + 37 MG CAPSULE RIGIDE [Concomitant]
     Dosage: 1 DOSAGE FORM: 25MG FUROSEMIDE + 37MG SPIRONOLACTONE
  5. PANTOPAN - COMPRESSE [Concomitant]
  6. CLENIL - 0,8 MG/2 ML SOSPENSIONE DA NEBULIZZARE [Concomitant]
  7. FLUIBRON - 15 MG/2 ML SOLUZIONE DA NEBULIZZARE [Concomitant]

REACTIONS (4)
  - Hallucination, auditory [Recovering/Resolving]
  - Hallucination, visual [Recovering/Resolving]
  - Hyperhidrosis [Recovering/Resolving]
  - Tremor [Recovering/Resolving]
